FAERS Safety Report 11179536 (Version 1)
Quarter: 2015Q2

REPORT INFORMATION
  Report Type: Report from Study
  Country: DE (occurrence: DE)
  Receive Date: 20150611
  Receipt Date: 20150611
  Transmission Date: 20150821
  Serious: Yes (Hospitalization)
  Sender: FDA-Public Use
  Company Number: DE-PFIZER INC-2015191692

PATIENT
  Age: 78 Year
  Sex: Male
  Weight: 73 kg

DRUGS (11)
  1. PANTOZOL [Concomitant]
     Active Substance: PANTOPRAZOLE SODIUM
     Indication: PROPHYLAXIS AGAINST GASTROINTESTINAL ULCER
     Dosage: UNK
     Route: 048
  2. OXYGESIC AKUT [Concomitant]
     Active Substance: OXYCODONE
     Indication: PAIN
     Dosage: UNK
     Route: 048
  3. TAVOR [Concomitant]
     Active Substance: LORAZEPAM
     Indication: SUPPORTIVE CARE
     Dosage: 1 MG, UNK
     Route: 048
  4. SUTENT [Suspect]
     Active Substance: SUNITINIB MALATE
     Indication: RENAL CELL CARCINOMA
     Dosage: 37.5 MG, 1X/DAY
     Dates: start: 20150109, end: 20150122
  5. XGEVA [Concomitant]
     Active Substance: DENOSUMAB
     Indication: METASTASES TO BONE
     Dosage: UNK
     Route: 058
  6. PREDNISON [Concomitant]
     Active Substance: PREDNISONE
     Indication: SUPPORTIVE CARE
     Dosage: 5 MG, UNK
     Route: 048
  7. TOREM /01036501/ [Concomitant]
     Active Substance: TORSEMIDE
     Indication: BLOOD PRESSURE INCREASED
     Dosage: 20
     Route: 048
  8. SUTENT [Suspect]
     Active Substance: SUNITINIB MALATE
     Dosage: 50 MG, 1X/DAY
     Dates: start: 20150123, end: 20150507
  9. TARGIN [Concomitant]
     Active Substance: NALOXONE HYDROCHLORIDE\OXYCODONE HYDROCHLORIDE
     Indication: PAIN
     Dosage: UNK
     Route: 048
  10. CALCIUM/D [Concomitant]
     Indication: MINERAL SUPPLEMENTATION
     Dosage: 600/400
     Route: 048
  11. L-THYROXIN [Concomitant]
     Active Substance: LEVOTHYROXINE SODIUM
     Indication: HYPOTHYROIDISM
     Dosage: 100 UNK, UNK
     Route: 048

REACTIONS (2)
  - Dyspnoea [Recovered/Resolved]
  - General physical health deterioration [Recovered/Resolved]

NARRATIVE: CASE EVENT DATE: 20150512
